FAERS Safety Report 5500277-5 (Version None)
Quarter: 2007Q4

REPORT INFORMATION
  Report Type: 
  Country: None (occurrence: None)
  Receive Date: 20071029
  Receipt Date: 20071018
  Transmission Date: 20080405
  Serious: Yes (Hospitalization)
  Sender: FDA-Public Use
  Company Number: US-ELI_LILLY_AND_COMPANY-US200710005368

PATIENT
  Sex: Male

DRUGS (2)
  1. ZYPREXA [Suspect]
     Indication: SCHIZOAFFECTIVE DISORDER
     Dosage: 50 MG, UNK
  2. HALOPERIDOL [Concomitant]

REACTIONS (3)
  - HALLUCINATION, AUDITORY [None]
  - HOSPITALISATION [None]
  - OVERDOSE [None]
